FAERS Safety Report 20701207 (Version 1)
Quarter: 2022Q2

REPORT INFORMATION
  Report Type: Spontaneous
  Country: CA (occurrence: CA)
  Receive Date: 20220412
  Receipt Date: 20220412
  Transmission Date: 20220721
  Serious: Yes (Other)
  Sender: FDA-Public Use
  Company Number: CA-009507513-1902CAN002914

PATIENT
  Age: 51 Year
  Sex: Female

DRUGS (19)
  1. EZETIMIBE [Suspect]
     Active Substance: EZETIMIBE
     Indication: Xanthoma
     Dosage: 10 MILLIGRAM
     Route: 065
  2. EZETIMIBE [Suspect]
     Active Substance: EZETIMIBE
     Indication: Type IIa hyperlipidaemia
     Dosage: UNK
     Route: 065
  3. EZETIMIBE [Suspect]
     Active Substance: EZETIMIBE
     Dosage: 10 MILLIGRAM
     Route: 065
  4. EZETIMIBE [Suspect]
     Active Substance: EZETIMIBE
     Dosage: UNK
     Route: 065
  5. EVOLOCUMAB [Suspect]
     Active Substance: EVOLOCUMAB
     Indication: Xanthoma
     Dosage: 140.0 MILLIGRAM
     Route: 058
  6. EVOLOCUMAB [Suspect]
     Active Substance: EVOLOCUMAB
     Indication: Type IIa hyperlipidaemia
     Dosage: 140.0 MILLIGRAM
     Route: 058
  7. ATORVASTATIN [Suspect]
     Active Substance: ATORVASTATIN
     Indication: Xanthoma
     Dosage: UNK
     Route: 065
  8. ATORVASTATIN [Suspect]
     Active Substance: ATORVASTATIN
     Indication: Type IIa hyperlipidaemia
     Dosage: UNK
     Route: 065
  9. ATORVASTATIN [Suspect]
     Active Substance: ATORVASTATIN
     Indication: Xanthoma
     Dosage: UNK
     Route: 065
  10. ATORVASTATIN [Suspect]
     Active Substance: ATORVASTATIN
     Indication: Type IIa hyperlipidaemia
     Dosage: UNK
     Route: 065
  11. COLESEVELAM HYDROCHLORIDE [Suspect]
     Active Substance: COLESEVELAM HYDROCHLORIDE
     Indication: Type IIa hyperlipidaemia
     Dosage: UNK
     Route: 065
  12. COLESEVELAM HYDROCHLORIDE [Suspect]
     Active Substance: COLESEVELAM HYDROCHLORIDE
     Indication: Xanthoma
     Dosage: UNK
     Route: 065
  13. PRAVASTATIN [Suspect]
     Active Substance: PRAVASTATIN
     Indication: Xanthoma
     Dosage: UNK
     Route: 065
  14. PRAVASTATIN [Suspect]
     Active Substance: PRAVASTATIN
     Indication: Type IIa hyperlipidaemia
     Dosage: UNK
     Route: 065
  15. PRAVASTATIN SODIUM [Suspect]
     Active Substance: PRAVASTATIN SODIUM
     Indication: Type IIa hyperlipidaemia
     Dosage: 10 MILLIGRAM
     Route: 065
  16. REPATHA [Suspect]
     Active Substance: EVOLOCUMAB
     Indication: Type IIa hyperlipidaemia
     Dosage: UNK
     Route: 058
  17. ROSUVASTATIN [Suspect]
     Active Substance: ROSUVASTATIN
     Indication: Type IIa hyperlipidaemia
     Dosage: 10.0 MILLIGRAM
     Route: 048
  18. ROSUVASTATIN CALCIUM [Suspect]
     Active Substance: ROSUVASTATIN CALCIUM
     Indication: Type IIa hyperlipidaemia
     Dosage: 10.0 MILLIGRAM
     Route: 048
  19. ROSUVASTATIN CALCIUM [Suspect]
     Active Substance: ROSUVASTATIN CALCIUM
     Indication: Xanthoma
     Dosage: 10.0 MILLIGRAM
     Route: 048

REACTIONS (2)
  - Drug ineffective [Unknown]
  - Drug intolerance [Unknown]
